FAERS Safety Report 5152819-X (Version None)
Quarter: 2006Q4

REPORT INFORMATION
  Report Type: 
  Country: None (occurrence: None)
  Receive Date: 20061109
  Receipt Date: 20061027
  Transmission Date: 20070319
  Serious: Yes (Hospitalization)
  Sender: FDA-Public Use
  Company Number: 231474

PATIENT
  Age: 47 Year
  Sex: Male
  Weight: 62.7 kg

DRUGS (7)
  1. EFALIZUMAB (EFALIZUMAB) PWDR + SOLVENT, INJECTION SOLN, 125 MG [Suspect]
     Indication: PSORIASIS
     Dosage: 70 MG, 1/WEEK, SUBCUTANEOUS
     Route: 058
     Dates: start: 20060425, end: 20061012
  2. COLACE (DOCUSATE SODIUM) [Concomitant]
  3. ULTRAVATE CREAM (HALOBETASOL PROPIONATE) [Concomitant]
  4. DOVONEX CREAM (CALCIPOTRIENE) [Concomitant]
  5. FLUOCINOLONE LOTION (FLUOCINOLONE ACETATE) [Concomitant]
  6. CLOBEX [Concomitant]
  7. PROTONIX [Concomitant]

REACTIONS (12)
  - ARTHRALGIA [None]
  - BACK PAIN [None]
  - CALCINOSIS [None]
  - COMPUTERISED TOMOGRAM ABDOMEN ABNORMAL [None]
  - GOUT [None]
  - LYMPHADENOPATHY [None]
  - NIGHT SWEATS [None]
  - POLYARTHRITIS [None]
  - PROSTATE EXAMINATION ABNORMAL [None]
  - SYSTEMIC INFLAMMATORY RESPONSE SYNDROME [None]
  - URINARY TRACT INFECTION [None]
  - WEIGHT DECREASED [None]
